FAERS Safety Report 22079785 (Version 6)
Quarter: 2024Q2

REPORT INFORMATION
  Report Type: Spontaneous
  Country: JP (occurrence: JP)
  Receive Date: 20230309
  Receipt Date: 20240421
  Transmission Date: 20240716
  Serious: Yes (Death, Hospitalization, Other)
  Sender: FDA-Public Use
  Company Number: JP-BRISTOL-MYERS SQUIBB COMPANY-2023-033691

PATIENT
  Age: 74 Year
  Sex: Male

DRUGS (4)
  1. YERVOY [Suspect]
     Active Substance: IPILIMUMAB
     Indication: Malignant melanoma
     Dosage: COMBINATION THERAPY OF NIVOLUMAB WITH IPILIMUMAB. IN JANUARY OF YEAR X, THE FIRST COURSE WAS ADMINIS
     Route: 041
  2. YERVOY [Suspect]
     Active Substance: IPILIMUMAB
  3. OPDIVO [Suspect]
     Active Substance: NIVOLUMAB
     Indication: Adjuvant therapy
     Dosage: NIVOLUMAB (240MG/EVERY 2 WEEKS) WAS ADMINISTERED 8 TIMES FROM SEPTEMBER TO DECEMBER OF YEAR X-1 AS P
     Route: 041
  4. OPDIVO [Suspect]
     Active Substance: NIVOLUMAB
     Indication: Malignant melanoma
     Dosage: COMBINATION THERAPY OF NIVOLUMAB WITH IPILIMUMAB. IN JANUARY OF YEAR X, THE FIRST COURSE WAS ADMINIS
     Route: 041

REACTIONS (24)
  - Malignant neoplasm progression [Unknown]
  - Immune-mediated hypothyroidism [Not Recovered/Not Resolved]
  - Decreased appetite [Unknown]
  - Malaise [Unknown]
  - Immune-mediated hepatitis [Unknown]
  - Aspartate aminotransferase increased [Unknown]
  - Blood lactate dehydrogenase increased [Unknown]
  - Hyponatraemia [Unknown]
  - Disseminated intravascular coagulation [Fatal]
  - Pyrexia [Recovered/Resolved]
  - Splenomegaly [Unknown]
  - Arrhythmia [Recovered/Resolved]
  - Blood triglycerides increased [Unknown]
  - Alanine aminotransferase increased [Unknown]
  - Blood creatine phosphokinase increased [Unknown]
  - Blood alkaline phosphatase increased [Unknown]
  - Gamma-glutamyltransferase increased [Unknown]
  - Platelet count decreased [Unknown]
  - Cytokine release syndrome [Unknown]
  - C-reactive protein increased [Unknown]
  - Acute respiratory distress syndrome [Fatal]
  - Hepatic enzyme increased [Unknown]
  - Serum ferritin increased [Unknown]
  - Respiratory failure [Fatal]
